FAERS Safety Report 7043234-2 (Version None)
Quarter: 2010Q4

REPORT INFORMATION
  Report Type: 
  Country: None (occurrence: None)
  Receive Date: 20101013
  Receipt Date: 20100331
  Transmission Date: 20110411
  Serious: No
  Sender: FDA-Public Use
  Company Number: US-ASTRAZENECA-2010SE14201

PATIENT
  Age: 26 Year
  Sex: Female
  Weight: 93 kg

DRUGS (2)
  1. SYMBICORT [Suspect]
     Indication: ASTHMA
     Dosage: 640 UG
     Route: 055
     Dates: start: 20080101
  2. ALBUTEROL [Concomitant]

REACTIONS (4)
  - EYE IRRITATION [None]
  - EYE PRURITUS [None]
  - IMPAIRED DRIVING ABILITY [None]
  - VISION BLURRED [None]
